FAERS Safety Report 8824732 (Version 1)
Quarter: 2012Q4

REPORT INFORMATION
  Report Type: 
  Country: US (occurrence: US)
  Receive Date: 20121004
  Receipt Date: 20121004
  Transmission Date: 20130627
  Serious: No
  Sender: FDA-Public Use
  Company Number: US-PFIZER INC-2012245297

PATIENT
  Age: 52 Year
  Sex: Male
  Weight: 77.1 kg

DRUGS (5)
  1. CHANTIX [Suspect]
     Indication: SMOKING CESSATION THERAPY
     Dosage: 0.5 mg, daily
     Dates: start: 20120926, end: 2012
  2. CHANTIX [Suspect]
     Dosage: 0.5 mg, UNK
     Dates: start: 2012, end: 2012
  3. CHANTIX [Suspect]
     Dosage: 0.5 mg, 2x/day
     Dates: start: 2012
  4. ATENOLOL W/CHLORTALIDONE [Concomitant]
     Indication: HYPERTENSION
     Dosage: 50/25 mg, UNK
  5. BENADRYL [Concomitant]
     Indication: SLEEP DISORDER
     Dosage: 100 mg (25 mg x 4 tablets) daily at night

REACTIONS (6)
  - Agitation [Not Recovered/Not Resolved]
  - Rash [Not Recovered/Not Resolved]
  - Fatigue [Unknown]
  - Dysgeusia [Unknown]
  - Crying [Unknown]
  - Sleep disorder [Unknown]
